FAERS Safety Report 6695360-5 (Version None)
Quarter: 2010Q2

REPORT INFORMATION
  Report Type: 
  Country: None (occurrence: None)
  Receive Date: 20100423
  Receipt Date: 20100423
  Transmission Date: 20101027
  Serious: Yes (Other)
  Sender: FDA-Public Use
  Company Number: None

PATIENT
  Age: 16 Year
  Sex: Female
  Weight: 53.5244 kg

DRUGS (1)
  1. LAMICTAL [Suspect]
     Indication: EPILEPSY
     Dosage: 25 MG 1X TABLET
     Dates: start: 20100401, end: 20100411

REACTIONS (5)
  - LYMPHADENOPATHY [None]
  - PAIN [None]
  - PYREXIA [None]
  - RASH [None]
  - TONSILLAR HYPERTROPHY [None]
